FAERS Safety Report 23392146 (Version 1)
Quarter: 2024Q1

REPORT INFORMATION
  Report Type: Spontaneous
  Country: US (occurrence: US)
  Receive Date: 20240111
  Receipt Date: 20240111
  Transmission Date: 20240409
  Serious: No
  Sender: FDA-Public Use
  Company Number: US-PFIZER INC-202400008768

PATIENT
  Age: 74 Year
  Sex: Female

DRUGS (1)
  1. IBRANCE [Suspect]
     Active Substance: PALBOCICLIB
     Dosage: 100 MG TABLETS - 1 TABLET DAILY FOR 21 DAYS THEN 1 WEEK OFF

REACTIONS (3)
  - Stomatitis [Recovering/Resolving]
  - Scratch [Recovering/Resolving]
  - Infection [Recovering/Resolving]
